FAERS Safety Report 22318566 (Version 2)
Quarter: 2023Q2

REPORT INFORMATION
  Report Type: Other
  Country: US (occurrence: None)
  Receive Date: 20230515
  Receipt Date: 20230517
  Transmission Date: 20230721
  Serious: Yes (Hospitalization)
  Sender: FDA-Public Use
  Company Number: US-ROCHE-3347850

PATIENT
  Age: 57 Year
  Sex: Female

DRUGS (1)
  1. BEVACIZUMAB [Suspect]
     Active Substance: BEVACIZUMAB
     Indication: Colon cancer
     Route: 065

REACTIONS (3)
  - Acute kidney injury [Recovering/Resolving]
  - Proteinuria [Unknown]
  - Thrombotic microangiopathy [Recovering/Resolving]
